FAERS Safety Report 25339695 (Version 1)
Quarter: 2025Q2

REPORT INFORMATION
  Report Type: Spontaneous
  Country: FR (occurrence: FR)
  Receive Date: 20250521
  Receipt Date: 20250521
  Transmission Date: 20250717
  Serious: Yes (Congenital Anomaly)
  Sender: CHEPLAPHARM
  Company Number: None

PATIENT

DRUGS (2)
  1. OLANZAPINE [Suspect]
     Active Substance: OLANZAPINE
     Indication: Mental disorder
     Route: 064
     Dates: start: 2021, end: 202112
  2. ARIPIPRAZOLE [Suspect]
     Active Substance: ARIPIPRAZOLE
     Indication: Mental disorder
     Dosage: DAILY DOSE: 5 MILLIGRAM
     Route: 064
     Dates: start: 2021, end: 202112

REACTIONS (5)
  - Foetal exposure during pregnancy [Recovered/Resolved]
  - Iris adhesions [Not Recovered/Not Resolved]
  - Corneal disorder [Not Recovered/Not Resolved]
  - Anterior chamber cleavage syndrome [Not Recovered/Not Resolved]
  - Cytomegalovirus infection [Unknown]

NARRATIVE: CASE EVENT DATE: 20210101
